FAERS Safety Report 18346570 (Version 4)
Quarter: 2020Q4

REPORT INFORMATION
  Report Type: Spontaneous
  Country: US (occurrence: US)
  Receive Date: 20201005
  Receipt Date: 20201218
  Transmission Date: 20210114
  Serious: No
  Sender: FDA-Public Use
  Company Number: US-B.I. PHARMACEUTICALS,INC./RIDGEFIELD-2020-BI-052364

PATIENT
  Sex: Male

DRUGS (1)
  1. PRADAXA [Suspect]
     Active Substance: DABIGATRAN ETEXILATE MESYLATE
     Indication: ATRIAL FIBRILLATION
     Route: 065
     Dates: start: 2010

REACTIONS (7)
  - Hiatus hernia [Unknown]
  - Spondylitis [Not Recovered/Not Resolved]
  - Product complaint [Unknown]
  - Dyspepsia [Unknown]
  - Product quality issue [Unknown]
  - Arthritis [Not Recovered/Not Resolved]
  - Arthritis [Unknown]
